FAERS Safety Report 16021009 (Version 1)
Quarter: 2019Q1

REPORT INFORMATION
  Report Type: Spontaneous
  Country: US (occurrence: US)
  Receive Date: 20190301
  Receipt Date: 20190301
  Transmission Date: 20190418
  Serious: No
  Sender: FDA-Public Use
  Company Number: US-PFIZER INC-2019085842

PATIENT
  Age: 53 Year
  Sex: Female

DRUGS (1)
  1. XELJANZ [Suspect]
     Active Substance: TOFACITINIB CITRATE
     Indication: RHEUMATOID ARTHRITIS
     Dosage: 5 MG, 2X/DAY
     Route: 048
     Dates: start: 20190122, end: 20190215

REACTIONS (5)
  - Depression [Recovered/Resolved]
  - Condition aggravated [Unknown]
  - Back pain [Recovered/Resolved]
  - Anxiety [Recovered/Resolved]
  - Dysuria [Recovered/Resolved]
